FAERS Safety Report 6931148-5 (Version None)
Quarter: 2010Q3

REPORT INFORMATION
  Report Type: 
  Country: None (occurrence: None)
  Receive Date: 20100818
  Receipt Date: 20100810
  Transmission Date: 20110219
  Serious: Yes (Hospitalization)
  Sender: FDA-Public Use
  Company Number: FR-ABBOTT-10P-056-0663118-00

PATIENT
  Age: 16 Year
  Sex: Male

DRUGS (2)
  1. DEPAKENE [Suspect]
     Indication: PARTIAL SEIZURES
     Route: 048
     Dates: start: 19970101
  2. TEGRETOL [Suspect]
     Indication: PRODUCT USED FOR UNKNOWN INDICATION
     Route: 048
     Dates: start: 19970101

REACTIONS (3)
  - FRACTURE [None]
  - HYPOCALCAEMIA [None]
  - VITAMIN D DEFICIENCY [None]
